FAERS Safety Report 16338626 (Version 2)
Quarter: 2019Q3

REPORT INFORMATION
  Report Type: Spontaneous
  Country: FR (occurrence: FR)
  Receive Date: 20190521
  Receipt Date: 20190816
  Transmission Date: 20191004
  Serious: Yes (Life-Threatening, Hospitalization, Other)
  Sender: FDA-Public Use
  Company Number: FR-PFM-2019-05919

PATIENT

DRUGS (6)
  1. QUETIAPINE. [Suspect]
     Active Substance: QUETIAPINE
     Indication: MAJOR DEPRESSION
     Dosage: 4 G, IN TOTAL
     Route: 048
  2. DIAZEPAM. [Suspect]
     Active Substance: DIAZEPAM
     Indication: TOXICITY TO VARIOUS AGENTS
     Dosage: 100 MG IN TOTAL
     Route: 048
  3. SODIUM DIVALPROATE [Suspect]
     Active Substance: VALPROATE SODIUM
     Indication: TOXICITY TO VARIOUS AGENTS
     Dosage: 19 G IN TOTAL
     Route: 048
  4. QUETIAPINE. [Suspect]
     Active Substance: QUETIAPINE
     Indication: TOXICITY TO VARIOUS AGENTS
  5. PROPRANOLOL [Suspect]
     Active Substance: PROPRANOLOL HYDROCHLORIDE
     Indication: TOXICITY TO VARIOUS AGENTS
     Dosage: 400 MG, IN TOTAL
     Route: 048
  6. ALPRAZOLAM. [Suspect]
     Active Substance: ALPRAZOLAM
     Indication: TOXICITY TO VARIOUS AGENTS
     Dosage: 20 MG IN TOTAL
     Route: 048

REACTIONS (11)
  - Blood creatine phosphokinase increased [Unknown]
  - Blood pressure systolic decreased [Unknown]
  - Toxicity to various agents [Unknown]
  - Heart rate decreased [Unknown]
  - Coma [Recovering/Resolving]
  - Off label use [Unknown]
  - Product use issue [Unknown]
  - Intentional overdose [Unknown]
  - Drug interaction [Unknown]
  - Sinus rhythm [Unknown]
  - Lung disorder [Unknown]
